FAERS Safety Report 17202460 (Version 1)
Quarter: 2019Q4

REPORT INFORMATION
  Report Type: Other
  Country: US (occurrence: NL)
  Receive Date: 20191226
  Receipt Date: 20191226
  Transmission Date: 20200122
  Serious: Yes (Hospitalization, Other)
  Sender: FDA-Public Use
  Company Number: NL-RARE DISEASE THERAPEUTICS, INC.-2078189

PATIENT
  Age: 6 Month
  Sex: Male

DRUGS (1)
  1. PURIXAN [Suspect]
     Active Substance: MERCAPTOPURINE
     Indication: JUVENILE CHRONIC MYELOMONOCYTIC LEUKAEMIA

REACTIONS (2)
  - Venoocclusive liver disease [Recovered/Resolved]
  - Off label use [None]
